FAERS Safety Report 4386411-1 (Version None)
Quarter: 2004Q2

REPORT INFORMATION
  Report Type: 
  Country: None (occurrence: None)
  Receive Date: 20040623
  Receipt Date: 20040611
  Transmission Date: 20050107
  Serious: Yes (Hospitalization)
  Sender: FDA-Public Use
  Company Number: 2004039272

PATIENT
  Age: 86 Year
  Sex: Male

DRUGS (5)
  1. DOXAZOSIN (DOXAZOSIN) [Suspect]
     Indication: BENIGN PROSTATIC HYPERPLASIA
     Dosage: 8 MG (8 MG, 1 IN 1 D), ORAL
     Route: 048
     Dates: start: 20031001, end: 20040101
  2. ATORVASTATIN CALCIUM [Concomitant]
  3. CARVEDILOL [Concomitant]
  4. GLYCERYL TRINITATRATE (GLYCERYL TRINITRATE) [Concomitant]
  5. ACENOCOUMAROL (ACENOCOUMAROL) [Concomitant]

REACTIONS (2)
  - HAEMORRHAGE [None]
  - IDIOPATHIC THROMBOCYTOPENIC PURPURA [None]
